FAERS Safety Report 15800206 (Version 1)
Quarter: 2019Q1

REPORT INFORMATION
  Report Type: Spontaneous
  Country: US (occurrence: US)
  Receive Date: 20190108
  Receipt Date: 20190108
  Transmission Date: 20190417
  Serious: Yes (Other)
  Sender: FDA-Public Use
  Company Number: US-FRESENIUS KABI-FK201900174

PATIENT
  Age: 74 Year
  Sex: Male

DRUGS (3)
  1. GENTAMICIN (MANUFACTURER UNKNOWN) [Suspect]
     Active Substance: GENTAMICIN
     Indication: PRODUCT USED FOR UNKNOWN INDICATION
     Route: 065
  2. VANCOMYCIN [Concomitant]
     Active Substance: VANCOMYCIN
     Indication: BACTERIAL INFECTION
     Route: 065
  3. AMPICILLIN SODIUM/SULBACTAM SODIUM [Concomitant]
     Indication: BACTERIAL INFECTION
     Route: 065

REACTIONS (1)
  - Drug-induced liver injury [Unknown]
